FAERS Safety Report 4845125-1 (Version None)
Quarter: 2005Q4

REPORT INFORMATION
  Report Type: 
  Country: None (occurrence: None)
  Receive Date: 20051125
  Receipt Date: 20051115
  Transmission Date: 20060501
  Serious: Yes (Other)
  Sender: FDA-Public Use
  Company Number: 2005138773

PATIENT
  Age: 69 Year
  Sex: Female

DRUGS (7)
  1. NEURONTIN [Suspect]
     Indication: HERPES ZOSTER
     Dosage: 1200 MG (300 MG, 4 IN 1 D)
     Dates: start: 20040101
  2. DIOVAN ^CIBA=GEIGY^ (VALSARTAN) [Concomitant]
  3. ATENOLOL [Concomitant]
  4. FLOVENT [Concomitant]
  5. AMIEN (ZOLPIDEM TARTRATE) [Concomitant]
  6. ASCORBIC ACID [Concomitant]
  7. CALCIUM GLUCONATE [Concomitant]

REACTIONS (2)
  - MULTIPLE MYELOMA [None]
  - PROTEIN TOTAL INCREASED [None]
